FAERS Safety Report 9620862 (Version 1)
Quarter: 2013Q4

REPORT INFORMATION
  Report Type: Spontaneous
  Country: US (occurrence: US)
  Receive Date: 20131015
  Receipt Date: 20131015
  Transmission Date: 20140711
  Serious: Yes (Hospitalization, Other)
  Sender: FDA-Public Use
  Company Number: US-BAYER-2013-121706

PATIENT
  Age: 34 Year
  Sex: Female

DRUGS (9)
  1. YAZ [Suspect]
     Dosage: UNK
     Dates: start: 201101, end: 201108
  2. GIANVI [Suspect]
  3. TRAMADOL HCL CF [Concomitant]
     Dosage: 50 MG, UNK
  4. SUMATRIPTAN [Concomitant]
     Dosage: 100 MG, UNK
  5. ALPRAZOLAM [Concomitant]
     Dosage: 0.25 MG, UNK
  6. NEXIUM [Concomitant]
  7. IMITREX [Concomitant]
  8. XANAX [Concomitant]
  9. CELEXA [Concomitant]

REACTIONS (2)
  - Cholelithiasis [None]
  - Cerebrovascular accident [None]
